FAERS Safety Report 4704130-6 (Version None)
Quarter: 2005Q2

REPORT INFORMATION
  Report Type: 
  Country: None (occurrence: None)
  Receive Date: 20050629
  Receipt Date: 20030407
  Transmission Date: 20051028
  Serious: Yes (Hospitalization)
  Sender: FDA-Public Use
  Company Number: 5145

PATIENT
  Age: 82 Year
  Sex: Male

DRUGS (6)
  1. AMIODARONE [Suspect]
     Indication: ATRIAL FIBRILLATION
     Dosage: 200 MG FREQ
     Dates: start: 20030228
  2. AMIODARONE [Suspect]
     Indication: ATRIAL FIBRILLATION
     Dosage: 1200 MG TOTAL
     Dates: start: 20030228, end: 20030301
  3. SENNA [Concomitant]
  4. LACTULOSE [Concomitant]
  5. OMEPRAZOLE [Concomitant]
  6. WARFARIN [Concomitant]

REACTIONS (2)
  - HEPATIC FUNCTION ABNORMAL [None]
  - JAUNDICE [None]
